FAERS Safety Report 20810378 (Version 1)
Quarter: 2022Q2

REPORT INFORMATION
  Report Type: Spontaneous
  Country: US (occurrence: US)
  Receive Date: 20220510
  Receipt Date: 20220510
  Transmission Date: 20220721
  Serious: No
  Sender: FDA-Public Use
  Company Number: US-OYSTER POINT PHARMA, INC.-2022OYS00298

PATIENT
  Age: 79 Year
  Sex: Female
  Weight: 78.912 kg

DRUGS (3)
  1. TYRVAYA [Suspect]
     Active Substance: VARENICLINE TARTRATE
     Indication: Dry eye
     Dosage: 0.06 MG (1 SPRAY IN EACH NOSTRIL), 2X/DAY
     Route: 045
     Dates: start: 20220322
  2. XIIDRA [Concomitant]
     Active Substance: LIFITEGRAST
  3. SYSTANE (HYPROMELLOSE 2910 (4000 MPA.S)) [Concomitant]
     Active Substance: HYPROMELLOSE 2910 (4000 MPA.S)

REACTIONS (6)
  - Nasal disorder [Not Recovered/Not Resolved]
  - Epistaxis [Recovered/Resolved]
  - Sneezing [Not Recovered/Not Resolved]
  - Product delivery mechanism issue [Not Recovered/Not Resolved]
  - Device difficult to use [Not Recovered/Not Resolved]
  - Incorrect dose administered by device [Not Recovered/Not Resolved]

NARRATIVE: CASE EVENT DATE: 20220301
